FAERS Safety Report 6542667-8 (Version None)
Quarter: 2010Q1

REPORT INFORMATION
  Report Type: 
  Country: None (occurrence: None)
  Receive Date: 20100119
  Receipt Date: 20100112
  Transmission Date: 20100710
  Serious: Yes (Hospitalization)
  Sender: FDA-Public Use
  Company Number: US-GILEAD-2010-0026454

PATIENT
  Sex: Male
  Weight: 68.2 kg

DRUGS (18)
  1. LETAIRIS [Suspect]
     Indication: PULMONARY ARTERIAL HYPERTENSION
     Route: 048
     Dates: start: 20090709
  2. HYDROCHLOROTHIAZIDE [Concomitant]
  3. BENICAR [Concomitant]
  4. CARDIZEM LA [Concomitant]
  5. PAXIL [Concomitant]
  6. GLUCOTROL [Concomitant]
  7. IMDUR [Concomitant]
  8. ADVAIR [Concomitant]
  9. AVODART [Concomitant]
  10. ALBUTEROL [Concomitant]
  11. CRESTOR [Concomitant]
  12. FOLIC ACID [Concomitant]
  13. FLOMAX [Concomitant]
  14. ONE A DAY MENS [Concomitant]
  15. MUCINEX [Concomitant]
  16. ZETIA [Concomitant]
  17. TYLENOL (CAPLET) [Concomitant]
  18. ANTABUSE [Concomitant]

REACTIONS (2)
  - ANAEMIA [None]
  - CHEST PAIN [None]
